FAERS Safety Report 13390203 (Version 4)
Quarter: 2017Q4

REPORT INFORMATION
  Report Type: Spontaneous
  Country: US (occurrence: US)
  Receive Date: 20170331
  Receipt Date: 20171219
  Transmission Date: 20180320
  Serious: No
  Sender: FDA-Public Use
  Company Number: US-TEVA-749965ACC

PATIENT
  Sex: Male

DRUGS (3)
  1. COPAXONE [Suspect]
     Active Substance: GLATIRAMER ACETATE
     Indication: MULTIPLE SCLEROSIS
     Dosage: LIQUID
     Route: 058
     Dates: start: 20160121
  2. VITAMIN B12 [Concomitant]
     Active Substance: CYANOCOBALAMIN
  3. VITAMIN D3 [Concomitant]
     Active Substance: CHOLECALCIFEROL

REACTIONS (4)
  - Injection site swelling [Not Recovered/Not Resolved]
  - Muscular weakness [Not Recovered/Not Resolved]
  - Grip strength decreased [Not Recovered/Not Resolved]
  - Fatigue [Not Recovered/Not Resolved]
